FAERS Safety Report 5780187-9 (Version None)
Quarter: 2008Q2

REPORT INFORMATION
  Report Type: 
  Country: None (occurrence: None)
  Receive Date: 20080620
  Receipt Date: 20080610
  Transmission Date: 20081010
  Serious: Yes (Other)
  Sender: FDA-Public Use
  Company Number: US-BAYER-200810355BCC

PATIENT
  Age: 59 Year
  Sex: Male
  Weight: 107 kg

DRUGS (9)
  1. ASPIRIN [Suspect]
     Indication: CARDIOVASCULAR EVENT PROPHYLAXIS
     Dosage: AS USED: 81 MG  UNIT DOSE: 81 MG
     Route: 048
  2. ASPIRIN [Suspect]
     Dosage: AS USED: 81 MG  UNIT DOSE: 81 MG
     Route: 048
  3. ASPIRIN [Suspect]
     Dosage: AS USED: 325 MG  UNIT DOSE: 325 MG
     Route: 048
  4. ASPIRIN [Suspect]
     Dosage: AS USED: 325 MG  UNIT DOSE: 325 MG
     Route: 048
  5. SAW PALMETTO [Concomitant]
  6. GLUCOSAMINE [Concomitant]
  7. ESTER C [Concomitant]
  8. LY-ZEEN [Concomitant]
  9. ONE SOURCE D [Concomitant]

REACTIONS (4)
  - ARTHRALGIA [None]
  - ARTHRITIS [None]
  - CHEST DISCOMFORT [None]
  - CHEST PAIN [None]
